FAERS Safety Report 5150203-6 (Version None)
Quarter: 2006Q4

REPORT INFORMATION
  Report Type: 
  Country: None (occurrence: None)
  Receive Date: 20061114
  Receipt Date: 20061101
  Transmission Date: 20070319
  Serious: Yes (Other)
  Sender: FDA-Public Use
  Company Number: PHMT2006CA02074

PATIENT
  Age: 59 Year
  Sex: Female

DRUGS (4)
  1. DIOVAN HCT [Suspect]
     Dosage: 80/12.5 MG
     Route: 048
     Dates: start: 20040101, end: 20050101
  2. DIOVAN HCT [Suspect]
     Dosage: 160/12.5MG
     Route: 048
     Dates: start: 20050101
  3. SYNTHROID [Concomitant]
  4. PAXIL [Suspect]
     Dates: start: 20020101

REACTIONS (1)
  - WEIGHT INCREASED [None]
